FAERS Safety Report 9924312 (Version 1)
Quarter: 2014Q1

REPORT INFORMATION
  Report Type: Spontaneous
  Country: US (occurrence: US)
  Receive Date: 20140226
  Receipt Date: 20140226
  Transmission Date: 20141002
  Serious: Yes (Other)
  Sender: FDA-Public Use
  Company Number: US-AMGEN-USASP2014013056

PATIENT
  Age: 62 Year
  Sex: Female
  Weight: 91 kg

DRUGS (21)
  1. ENBREL [Suspect]
     Indication: PRODUCT USED FOR UNKNOWN INDICATION
     Dosage: 50 MG, QWK
     Route: 058
     Dates: end: 20131001
  2. SINGULAIR [Concomitant]
     Dosage: 10 MG, UNK
  3. XANAX [Concomitant]
     Dosage: 0.5 MG, UNK
  4. PLAQUENIL                          /00072602/ [Concomitant]
     Dosage: 200 MG, UNK
  5. XYZAL [Concomitant]
     Dosage: 5 MG, UNK
  6. PREDNISONE [Concomitant]
     Dosage: 2.5 MG, UNK
  7. LYRICA [Concomitant]
     Dosage: 25 MG, UNK
  8. VICODIN [Concomitant]
     Dosage: 7.5, 300 UNK (ES)
  9. NASACORT AQ [Concomitant]
     Dosage: 55 MCG/AC, UNK (AER)
  10. NORTRIPTYLIN [Concomitant]
     Dosage: 25 MG, UNK
  11. METFORMIN [Concomitant]
     Dosage: 500 MG, UNK
  12. FENTANYL [Concomitant]
     Dosage: 50 MCG/HR UNK, (DIS)
  13. VENLAFAXINE [Concomitant]
     Dosage: 50 MG, UNK
  14. FLONASE                            /00908302/ [Concomitant]
     Dosage: 0.05 %, UNK (SPR)
  15. KEFLEX                             /00145501/ [Concomitant]
     Dosage: 250 MG, UNK
  16. CRESTOR [Concomitant]
     Dosage: 5 MG, UNK
  17. B COMPLEX                          /00212701/ [Concomitant]
     Dosage: UNK
  18. ASA [Concomitant]
     Dosage: 81 MG, UNK (LOW DOSE TAB, EC)
  19. LIDODERM [Concomitant]
     Dosage: 5 %, UNK (DIS)
  20. OCUVITE                            /01053801/ [Concomitant]
     Dosage: UNK
  21. VASOTEC                            /00574902/ [Concomitant]
     Dosage: 2.5 MG, UNK

REACTIONS (3)
  - Hip fracture [Unknown]
  - Urinary tract infection [Unknown]
  - Fall [Unknown]
